FAERS Safety Report 7388529-8 (Version None)
Quarter: 2011Q1

REPORT INFORMATION
  Report Type: 
  Country: None (occurrence: None)
  Receive Date: 20110324
  Receipt Date: 20110315
  Transmission Date: 20110831
  Serious: Yes (Hospitalization)
  Sender: FDA-Public Use
  Company Number: 2011S1000317

PATIENT
  Age: 67 Year
  Sex: Male

DRUGS (8)
  1. LIVALO [Suspect]
     Indication: HYPERCHOLESTEROLAEMIA
     Dosage: 2 MG; 1X; PO
     Route: 048
     Dates: start: 20110210, end: 20110305
  2. ASPIRIN [Concomitant]
  3. SOLETON [Concomitant]
  4. NIFEDIDPINE [Concomitant]
  5. TERNELIN [Concomitant]
  6. MAGNESIUM OXIDE [Concomitant]
  7. VALSARTAN [Concomitant]
  8. DEANOSART [Concomitant]

REACTIONS (4)
  - BLOOD LACTATE DEHYDROGENASE INCREASED [None]
  - BLOOD CREATINE PHOSPHOKINASE INCREASED [None]
  - WHITE BLOOD CELL COUNT INCREASED [None]
  - PAIN IN EXTREMITY [None]
